FAERS Safety Report 13581181 (Version 1)
Quarter: 2017Q2

REPORT INFORMATION
  Report Type: Spontaneous
  Country: US (occurrence: US)
  Receive Date: 20170525
  Receipt Date: 20170525
  Transmission Date: 20170830
  Serious: Yes (Death)
  Sender: FDA-Public Use
  Company Number: None

PATIENT
  Age: 80 Year
  Sex: Female

DRUGS (7)
  1. ANGIOMAX [Concomitant]
     Active Substance: BIVALIRUDIN
  2. WARFARIN [Concomitant]
     Active Substance: WARFARIN
  3. ASPIRIN. [Concomitant]
     Active Substance: ASPIRIN
  4. MULTAQ [Concomitant]
     Active Substance: DRONEDARONE
  5. PLAVIX [Concomitant]
     Active Substance: CLOPIDOGREL BISULFATE
  6. INTEGRILIN [Concomitant]
     Active Substance: EPTIFIBATIDE
  7. ALTEPLASE [Suspect]
     Active Substance: ALTEPLASE
     Indication: CEREBROVASCULAR ACCIDENT
     Dosage: ?          OTHER FREQUENCY:ONCE;?INTRAVENOUS (NOT OTHERWISE SPECIFIED)
     Route: 042
     Dates: start: 20170513

REACTIONS (1)
  - Haemorrhage intracranial [None]

NARRATIVE: CASE EVENT DATE: 20170513
